FAERS Safety Report 24381174 (Version 1)
Quarter: 2024Q4

REPORT INFORMATION
  Report Type: Report from Study
  Country: US (occurrence: US)
  Receive Date: 20241001
  Receipt Date: 20241001
  Transmission Date: 20250115
  Serious: Yes (Hospitalization, Other)
  Sender: ETON PHARMACEUTICALS
  Company Number: US-ETON PHARMACEUTICALS, INC-2024ETO000208

PATIENT

DRUGS (9)
  1. ALKINDI SPRINKLE [Suspect]
     Active Substance: HYDROCORTISONE
     Indication: Adrenocortical insufficiency acute
     Dosage: 2 MILLIGRAM, BID
     Route: 048
     Dates: start: 20220106
  2. ALKINDI SPRINKLE [Suspect]
     Active Substance: HYDROCORTISONE
     Dosage: 5 MILLIGRAM AS NEEDED (STRESS DOSING)
     Route: 048
     Dates: start: 20220106
  3. CIPROFLOXACIN AND DEXAMETHASONE [Concomitant]
     Active Substance: CIPROFLOXACIN HYDROCHLORIDE\DEXAMETHASONE
     Indication: Product used for unknown indication
     Dosage: UNK
  4. GENOTROPIN [Concomitant]
     Active Substance: SOMATROPIN
     Indication: Product used for unknown indication
     Dosage: UNK
  5. LEVOTHYROXINE [Concomitant]
     Active Substance: LEVOTHYROXINE
     Indication: Product used for unknown indication
     Dosage: 75 MCG TABLET, TAKE 0.5 TABLETS DAILY
     Route: 048
     Dates: start: 20240305
  6. NORDITROPIN [Concomitant]
     Active Substance: SOMATROPIN
     Indication: Product used for unknown indication
     Dosage: 5 MG/1.5 ML SOL PEN-INJECTION, INJECT 0.3 MG INTO THE SKIN NIGHTLY
     Dates: start: 20240731
  7. SOLU-CORTEF [Concomitant]
     Active Substance: HYDROCORTISONE SODIUM SUCCINATE
     Indication: Product used for unknown indication
     Dosage: INJECT 25 MG INTO THE MUSCLE AS NEEDED (LOSS OF CONSCIOUSNESS OR WHEN HE CANNOT TAKE ORALLY/PERSISTE
     Dates: start: 20240731
  8. HYDROCORTISONE [Concomitant]
     Active Substance: HYDROCORTISONE
     Indication: Product used for unknown indication
     Dosage: APPLY TO AFFECTED AREA TWICE A DAY FOR 7 DAYS THEN STOP
     Dates: start: 20240730
  9. Insulin Pen Needle [Concomitant]
     Indication: Product used for unknown indication
     Dosage: 32G*4MM
     Dates: start: 20240517

REACTIONS (5)
  - Feeding intolerance [Recovered/Resolved]
  - Pyrexia [Recovered/Resolved]
  - Febrile convulsion [Recovered/Resolved]
  - Vomiting [Recovered/Resolved]
  - Urinary tract infection [Recovered/Resolved]

NARRATIVE: CASE EVENT DATE: 20240804
